FAERS Safety Report 19873280 (Version 1)
Quarter: 2021Q3

REPORT INFORMATION
  Report Type: Spontaneous
  Country: CN (occurrence: CN)
  Receive Date: 20210923
  Receipt Date: 20210923
  Transmission Date: 20211014
  Serious: Yes (Hospitalization)
  Sender: FDA-Public Use
  Company Number: CN-DRREDDYS-LIT/CHN/21/0140211

PATIENT
  Age: 20 Year
  Sex: Male

DRUGS (8)
  1. ZIPRASIDONE. [Concomitant]
     Active Substance: ZIPRASIDONE
     Dosage: DOSE REDUCED TO 80 MG QD
  2. DIPHENHYDRAMINE. [Concomitant]
     Active Substance: DIPHENHYDRAMINE
     Indication: PRODUCT USED FOR UNKNOWN INDICATION
     Dosage: 4 MG QD
  3. OLANZAPINE. [Suspect]
     Active Substance: OLANZAPINE
     Indication: TARDIVE DYSKINESIA
     Dosage: 10 MG QN
     Route: 048
     Dates: start: 201703
  4. OLANZAPINE. [Suspect]
     Active Substance: OLANZAPINE
     Dosage: DOSE REDUCED TO 5 MG QN
     Route: 048
  5. OLANZAPINE. [Suspect]
     Active Substance: OLANZAPINE
     Dosage: DOSE INCREASED TO 10 MG QN
     Route: 048
     Dates: start: 201802
  6. ZIPRASIDONE. [Concomitant]
     Active Substance: ZIPRASIDONE
     Indication: SCHIZOPHRENIA
     Dosage: 140 MG QD
  7. DIPHENHYDRAMINE. [Concomitant]
     Active Substance: DIPHENHYDRAMINE
     Dosage: 4 MG QD
  8. DIPHENHYDRAMINE. [Concomitant]
     Active Substance: DIPHENHYDRAMINE
     Dosage: DOSE REDUCED TO 2 MG QN

REACTIONS (1)
  - Off label use [Unknown]

NARRATIVE: CASE EVENT DATE: 20180114
